FAERS Safety Report 6663222-5 (Version None)
Quarter: 2010Q2

REPORT INFORMATION
  Report Type: 
  Country: None (occurrence: None)
  Receive Date: 20100401
  Receipt Date: 20100325
  Transmission Date: 20101027
  Serious: Yes (Death, Hospitalization)
  Sender: FDA-Public Use
  Company Number: PHHY2010DE10134

PATIENT
  Sex: Male
  Weight: 75 kg

DRUGS (7)
  1. SIMULECT [Suspect]
     Indication: LIVER TRANSPLANT
     Dosage: 20 MG, UNK
  2. CERTICAN [Concomitant]
     Indication: LIVER TRANSPLANT
     Dosage: 1.5 MG PER DAY
     Route: 048
  3. CERTICAN [Concomitant]
     Indication: IMMUNOSUPPRESSION
  4. COTRIM [Concomitant]
     Indication: PROPHYLAXIS
     Dosage: 960 MG PER DAY
     Route: 048
  5. COTRIM [Concomitant]
     Indication: IMMUNOSUPPRESSION
  6. CELLCEPT [Concomitant]
     Indication: LIVER TRANSPLANT
     Dosage: 2000 MG PER DAY
     Route: 048
  7. CELLCEPT [Concomitant]
     Indication: IMMUNOSUPPRESSION

REACTIONS (4)
  - CARDIAC DISORDER [None]
  - CARDIAC FAILURE [None]
  - COMPLICATIONS OF TRANSPLANTED LIVER [None]
  - LIVER TRANSPLANT [None]
